FAERS Safety Report 8078081-6 (Version None)
Quarter: 2012Q1

REPORT INFORMATION
  Report Type: 
  Country: None (occurrence: None)
  Receive Date: 20120127
  Receipt Date: 20110110
  Transmission Date: 20120608
  Serious: No
  Sender: FDA-Public Use
  Company Number: US-ABBOTT-11P-163-0696138-00

PATIENT
  Sex: Female
  Weight: 59.02 kg

DRUGS (3)
  1. HUMIRA [Suspect]
     Route: 058
     Dates: start: 20090101, end: 20101201
  2. HUMIRA [Suspect]
     Indication: RHEUMATOID ARTHRITIS
     Route: 058
     Dates: start: 20080101, end: 20090101
  3. HUMIRA [Suspect]
     Route: 058
     Dates: start: 20101201

REACTIONS (3)
  - DRUG INEFFECTIVE [None]
  - JOINT SWELLING [None]
  - INFLUENZA [None]
